FAERS Safety Report 15737089 (Version 1)
Quarter: 2018Q4

REPORT INFORMATION
  Report Type: Report from Study
  Country: IT (occurrence: IT)
  Receive Date: 20181218
  Receipt Date: 20181218
  Transmission Date: 20190205
  Serious: Yes (Hospitalization)
  Sender: FDA-Public Use
  Company Number: IT-MYLANLABS-2018M1094043

PATIENT
  Age: 74 Year
  Sex: Female

DRUGS (8)
  1. CANRENONE [Concomitant]
     Active Substance: CANRENONE
  2. SINEMET [Concomitant]
     Active Substance: CARBIDOPA\LEVODOPA
  3. AMIODARONE [Suspect]
     Active Substance: AMIODARONE
     Indication: CARDIAC VALVE DISEASE
     Dosage: 200 MILLIGRAM, QD
     Route: 048
  4. COUMADIN [Suspect]
     Active Substance: WARFARIN SODIUM
     Indication: ATRIAL FIBRILLATION
     Dosage: 5 MILLIGRAM, AS NECESSARY
     Route: 048
  5. BISOPROLOL FUMARATE. [Concomitant]
     Active Substance: BISOPROLOL FUMARATE
  6. FUROSEMIDE. [Concomitant]
     Active Substance: FUROSEMIDE
  7. GLYCERYL TRINITRATE [Concomitant]
     Active Substance: NITROGLYCERIN
  8. LOSARTAN. [Concomitant]
     Active Substance: LOSARTAN

REACTIONS (3)
  - International normalised ratio increased [Not Recovered/Not Resolved]
  - Bradyphrenia [Not Recovered/Not Resolved]
  - Sopor [Not Recovered/Not Resolved]

NARRATIVE: CASE EVENT DATE: 20180521
